FAERS Safety Report 8546379-0 (Version None)
Quarter: 2012Q3

REPORT INFORMATION
  Report Type: 
  Country: None (occurrence: None)
  Receive Date: 20120727
  Receipt Date: 20120201
  Transmission Date: 20120928
  Serious: No
  Sender: FDA-Public Use
  Company Number: US-ASTRAZENECA-2012SE00622

PATIENT
  Age: 52 Year
  Sex: Female
  Weight: 86.6 kg

DRUGS (15)
  1. SEROQUEL XR [Suspect]
     Indication: BIPOLAR DISORDER
     Route: 048
  2. SEROQUEL XR [Suspect]
     Route: 048
     Dates: start: 20111101
  3. NORCO [Concomitant]
     Indication: PAIN
  4. SEROQUEL XR [Suspect]
     Route: 048
     Dates: start: 20111101, end: 20111201
  5. NEURONTIN [Concomitant]
     Indication: PAIN
  6. ZOLOFT [Concomitant]
     Indication: DEPRESSION
  7. LITHIUM CARBONATE [Concomitant]
     Indication: BIPOLAR DISORDER
  8. SEROQUEL XR [Suspect]
     Route: 048
     Dates: start: 20111101, end: 20111201
  9. WELBUTRINE [Concomitant]
     Indication: DEPRESSION
  10. TRAZODONE HYDROCHLORIDE [Concomitant]
     Indication: BIPOLAR DISORDER
  11. TRAZODONE HYDROCHLORIDE [Concomitant]
     Indication: INSOMNIA
  12. SEROQUEL XR [Suspect]
     Route: 048
     Dates: start: 20111101
  13. CLONAZEPAM [Concomitant]
     Indication: ANXIETY
  14. SEROQUEL XR [Suspect]
     Indication: DEPRESSION
     Route: 048
  15. TRAZODONE HYDROCHLORIDE [Concomitant]
     Indication: DEPRESSION

REACTIONS (4)
  - DECREASED APPETITE [None]
  - ABDOMINAL DISTENSION [None]
  - DYSPNOEA [None]
  - WEIGHT INCREASED [None]
